FAERS Safety Report 8379788-3 (Version None)
Quarter: 2012Q1

REPORT INFORMATION
  Report Type: 
  Country: None (occurrence: None)
  Receive Date: 20120323
  Receipt Date: 20110707
  Transmission Date: 20120608
  Serious: Yes (Hospitalization, Other)
  Sender: FDA-Public Use
  Company Number: 163-21880-11040334

PATIENT
  Age: 62 Year
  Sex: Female

DRUGS (5)
  1. REVLIMID [Suspect]
     Indication: MULTIPLE MYELOMA
     Dosage: 25 MG, 1 IN 1 D, PO 15 MG, 1 IN 1 D, PO
     Route: 048
     Dates: start: 20090401
  2. REVLIMID [Suspect]
     Indication: MULTIPLE MYELOMA
     Dosage: 25 MG, 1 IN 1 D, PO 15 MG, 1 IN 1 D, PO
     Route: 048
     Dates: start: 20110101, end: 20110402
  3. REVLIMID [Suspect]
     Indication: MULTIPLE MYELOMA
     Dosage: 25 MG, 1 IN 1 D, PO 15 MG, 1 IN 1 D, PO
     Route: 048
     Dates: start: 20100401
  4. REVLIMID [Suspect]
     Indication: MULTIPLE MYELOMA
     Dosage: 25 MG, 1 IN 1 D, PO 15 MG, 1 IN 1 D, PO
     Route: 048
     Dates: end: 20110523
  5. ZOMETA [Concomitant]

REACTIONS (5)
  - SEPSIS [None]
  - CHOLECYSTITIS ACUTE [None]
  - CHOLECYSTITIS [None]
  - RENAL FAILURE [None]
  - BLOOD POTASSIUM INCREASED [None]
